FAERS Safety Report 4709692-0 (Version None)
Quarter: 2005Q2

REPORT INFORMATION
  Report Type: 
  Country: None (occurrence: None)
  Receive Date: 20050629
  Receipt Date: 20050506
  Transmission Date: 20051028
  Serious: No
  Sender: FDA-Public Use
  Company Number: 05P-163-0300014-00

PATIENT
  Age: 71 Year
  Sex: Female
  Weight: 61.2356 kg

DRUGS (4)
  1. HUMIRA [Suspect]
     Indication: RHEUMATOID ARTHRITIS
     Dosage: 40 MG, 1 IN 2 WK, SUBCUTANEOUS
     Route: 058
     Dates: start: 20040601, end: 20050502
  2. CELECOXIB [Concomitant]
  3. ESOMEPRAZOLE [Concomitant]
  4. ASPIRIN [Concomitant]

REACTIONS (3)
  - DIFFICULTY IN WALKING [None]
  - NERVE COMPRESSION [None]
  - SCIATICA [None]
